FAERS Safety Report 5110409-9 (Version None)
Quarter: 2006Q3

REPORT INFORMATION
  Report Type: 
  Country: None (occurrence: None)
  Receive Date: 20060731
  Receipt Date: 20060626
  Transmission Date: 20061208
  Serious: No
  Sender: FDA-Public Use
  Company Number: 2006PV016497

PATIENT
  Age: 57 Year
  Sex: Female

DRUGS (3)
  1. BYETTA [Suspect]
     Indication: DIABETES MELLITUS
     Dosage: 5MCG; BID; SC
     Route: 058
     Dates: start: 20060208, end: 20060401
  2. AVANDIA [Concomitant]
  3. AMARYL [Concomitant]

REACTIONS (1)
  - WEIGHT DECREASED [None]
